FAERS Safety Report 5308663-3 (Version None)
Quarter: 2007Q2

REPORT INFORMATION
  Report Type: 
  Country: None (occurrence: None)
  Receive Date: 20070426
  Receipt Date: 20070416
  Transmission Date: 20071010
  Serious: Yes (Other)
  Sender: FDA-Public Use
  Company Number: BR-AVENTIS-200711884EU

PATIENT
  Age: 80 Year
  Sex: Female

DRUGS (17)
  1. LASIX [Suspect]
     Indication: SWELLING
     Dosage: DOSE: DOSAGE UNKNOWN
     Route: 048
  2. LASIX [Suspect]
     Dosage: DOSE: 2 TABLETS
     Route: 048
     Dates: start: 20060301, end: 20070412
  3. LASIX [Suspect]
     Indication: OEDEMA
     Dosage: DOSE: DOSAGE UNKNOWN
     Route: 048
  4. LASIX [Suspect]
     Dosage: DOSE: 2 TABLETS
     Route: 048
     Dates: start: 20060301, end: 20070412
  5. TERBINAFINE [Suspect]
     Dates: start: 20070101, end: 20070101
  6. DIGOXIN [Concomitant]
     Dosage: DOSE: 0.5 TABLET
  7. ALDACTONE [Concomitant]
     Dosage: DOSE: 1 TABLET
     Route: 048
  8. BURINAX [Concomitant]
     Dosage: DOSE: 2 TABLETS
     Route: 048
  9. CLORANA [Concomitant]
     Dosage: DOSE: 1 TABLET
     Route: 048
  10. LEVEMIR [Concomitant]
     Route: 048
  11. ACTOS [Concomitant]
  12. ENDOFOLIN                          /00024201/ [Concomitant]
  13. MAREVAN [Concomitant]
  14. VIAGRA [Concomitant]
  15. GLUCOFORMIN                        /00082701/ [Concomitant]
  16. AMARYL [Concomitant]
  17. RENITEC                            /00574901/ [Concomitant]

REACTIONS (1)
  - PEMPHIGUS [None]
